FAERS Safety Report 7655076-5 (Version None)
Quarter: 2011Q3

REPORT INFORMATION
  Report Type: 
  Country: None (occurrence: None)
  Receive Date: 20110801
  Receipt Date: 20110715
  Transmission Date: 20111222
  Serious: Yes (Other)
  Sender: FDA-Public Use
  Company Number: 2011MA008945

PATIENT
  Age: 72 Year
  Sex: Female

DRUGS (4)
  1. NIFEDIPINE [Concomitant]
  2. DICLOFENAC SODIUM [Suspect]
     Indication: OSTEOARTHRITIS
  3. LISINOPRIL [Concomitant]
  4. DOXAZOSIN MESYLATE [Concomitant]

REACTIONS (6)
  - ABDOMINAL DISTENSION [None]
  - VOMITING [None]
  - SMALL INTESTINAL STENOSIS [None]
  - ABDOMINAL PAIN [None]
  - SMALL INTESTINAL OBSTRUCTION [None]
  - ILEAL ULCER [None]
